FAERS Safety Report 8208471-X (Version None)
Quarter: 2012Q1

REPORT INFORMATION
  Report Type: 
  Country: None (occurrence: None)
  Receive Date: 20120314
  Receipt Date: 20120301
  Transmission Date: 20120608
  Serious: Yes (Other)
  Sender: FDA-Public Use
  Company Number: ES-AMGEN-ESPSP2012012596

PATIENT
  Age: 45 Year
  Sex: Female
  Weight: 90 kg

DRUGS (2)
  1. ENBREL [Suspect]
     Indication: PSORIASIS
     Dosage: 50 MG, 2X/WEEK
     Route: 058
     Dates: start: 20120206
  2. CEMIDON [Concomitant]
     Indication: ANTIBIOTIC PROPHYLAXIS
     Dosage: 300 MG, 1X/DAY
     Route: 048
     Dates: start: 20120206

REACTIONS (5)
  - NERVOUSNESS [None]
  - PANIC ATTACK [None]
  - INCORRECT DRUG ADMINISTRATION DURATION [None]
  - ANXIETY [None]
  - DIZZINESS [None]
